FAERS Safety Report 17571766 (Version 1)
Quarter: 2020Q1

REPORT INFORMATION
  Report Type: Spontaneous
  Country: PT (occurrence: PT)
  Receive Date: 20200323
  Receipt Date: 20200323
  Transmission Date: 20200409
  Serious: Yes (Life-Threatening)
  Sender: FDA-Public Use
  Company Number: PT-ASTRAZENECA-2020SE39557

PATIENT
  Age: 60 Year
  Sex: Female

DRUGS (5)
  1. DAPAGLIFLOZIN. [Suspect]
     Active Substance: DAPAGLIFLOZIN
     Route: 048
  2. PROTAMINATED  ASPARTIC INSULIN [Concomitant]
     Dosage: 16 + 24 + 24 UNITS/DAY
  3. INSULIN [Concomitant]
     Active Substance: INSULIN NOS
  4. ASPARTIC INSULIN [Concomitant]
     Dosage: 30%
  5. METFORMIN [Suspect]
     Active Substance: METFORMIN HYDROCHLORIDE
     Dosage: NON-AZ PRODUCT
     Route: 065

REACTIONS (1)
  - Diabetic ketoacidosis [Recovering/Resolving]
